FAERS Safety Report 5394422-2 (Version None)
Quarter: 2007Q3

REPORT INFORMATION
  Report Type: 
  Country: None (occurrence: None)
  Receive Date: 20070723
  Receipt Date: 20070426
  Transmission Date: 20080115
  Serious: No
  Sender: FDA-Public Use
  Company Number: US-AMGEN-US221108

PATIENT
  Sex: Male

DRUGS (8)
  1. VECTIBIX [Suspect]
     Indication: DRUG USE FOR UNKNOWN INDICATION
     Route: 042
     Dates: start: 20070329
  2. OXYCONTIN [Concomitant]
     Route: 065
  3. ACIPHEX [Concomitant]
     Route: 065
  4. ATIVAN [Concomitant]
     Route: 065
  5. GEMZAR [Concomitant]
     Route: 065
  6. NEUPOGEN [Concomitant]
     Route: 065
  7. PROCRIT [Concomitant]
     Route: 065
  8. AVASTIN [Concomitant]
     Route: 065

REACTIONS (1)
  - BLOOD MAGNESIUM DECREASED [None]
